FAERS Safety Report 6738320-8 (Version None)
Quarter: 2010Q2

REPORT INFORMATION
  Report Type: 
  Country: None (occurrence: None)
  Receive Date: 20100524
  Receipt Date: 20100518
  Transmission Date: 20101027
  Serious: Yes (Hospitalization)
  Sender: FDA-Public Use
  Company Number: US-MERCK-1005USA00455

PATIENT
  Age: 79 Year
  Sex: Female

DRUGS (3)
  1. COZAAR [Suspect]
     Indication: HYPERTENSION
     Route: 048
     Dates: start: 20060101
  2. CIPRO [Concomitant]
     Route: 065
  3. FUROSEMIDE [Concomitant]
     Route: 065

REACTIONS (1)
  - BLADDER CANCER [None]
